FAERS Safety Report 13397901 (Version 2)
Quarter: 2017Q2

REPORT INFORMATION
  Report Type: Spontaneous
  Country: FI (occurrence: FI)
  Receive Date: 20170403
  Receipt Date: 20170420
  Transmission Date: 20170830
  Serious: Yes (Hospitalization)
  Sender: FDA-Public Use
  Company Number: FI-JNJFOC-20170331964

PATIENT
  Age: 5 Decade
  Sex: Female

DRUGS (1)
  1. STELARA [Suspect]
     Active Substance: USTEKINUMAB
     Indication: CROHN^S DISEASE
     Route: 058
     Dates: start: 2016

REACTIONS (3)
  - Ankylosing spondylitis [Unknown]
  - Small intestinal resection [Unknown]
  - Abscess intestinal [Recovered/Resolved with Sequelae]

NARRATIVE: CASE EVENT DATE: 20170217
